FAERS Safety Report 5409906-8 (Version None)
Quarter: 2007Q3

REPORT INFORMATION
  Report Type: 
  Country: None (occurrence: None)
  Receive Date: 20070809
  Receipt Date: 20070730
  Transmission Date: 20080115
  Serious: Yes (Hospitalization, Other)
  Sender: FDA-Public Use
  Company Number: BR-PFIZER INC-2007064424

PATIENT
  Sex: Male

DRUGS (6)
  1. LIPITOR [Suspect]
     Indication: BLOOD CHOLESTEROL INCREASED
     Route: 048
     Dates: start: 20020101, end: 20070701
  2. ISCOVER [Concomitant]
  3. ACETYLSALICYLIC ACID SRT [Concomitant]
     Route: 048
  4. SUSTRATE [Concomitant]
     Route: 048
  5. SELOZOK [Concomitant]
     Route: 048
  6. INDAPAMIDE [Concomitant]
     Route: 048

REACTIONS (2)
  - HIGH DENSITY LIPOPROTEIN DECREASED [None]
  - INFARCTION [None]
